FAERS Safety Report 5099188-1 (Version None)
Quarter: 2006Q3

REPORT INFORMATION
  Report Type: 
  Country: None (occurrence: None)
  Receive Date: 20060728
  Receipt Date: 20060531
  Transmission Date: 20061208
  Serious: No
  Sender: FDA-Public Use
  Company Number: COT_0545_2006

PATIENT
  Age: 60 Year
  Sex: Male
  Weight: 69.8539 kg

DRUGS (2)
  1. VENTAVIS [Suspect]
     Indication: PULMONARY HYPERTENSION
     Dosage: 5 MCG 6XD IH
     Route: 055
     Dates: start: 20060525
  2. SILDENAFIL [Concomitant]

REACTIONS (1)
  - ABDOMINAL PAIN UPPER [None]
